FAERS Safety Report 20242820 (Version 7)
Quarter: 2022Q2

REPORT INFORMATION
  Report Type: Report from Study
  Country: AR (occurrence: AR)
  Receive Date: 20211228
  Receipt Date: 20220420
  Transmission Date: 20220721
  Serious: Yes (Hospitalization, Other)
  Sender: FDA-Public Use
  Company Number: AR-BRISTOL-MYERS SQUIBB COMPANY-BMS-2021-141913

PATIENT
  Age: 65 Year
  Sex: Female
  Weight: 62 kg

DRUGS (19)
  1. NIVOLUMAB [Suspect]
     Active Substance: NIVOLUMAB
     Indication: Non-small cell lung cancer
     Dosage: RECEIVED ONLY ONE DOSE OF STUDY THERAPY PRIOR TO EVENT ONSET
     Route: 042
     Dates: start: 20211130
  2. CISPLATIN [Suspect]
     Active Substance: CISPLATIN
     Indication: Non-small cell lung cancer
     Dosage: THE PATIENT RECEIVED ONLY ONE DOSE OF STUDY THERAPY.
     Route: 042
     Dates: start: 20211130
  3. CISPLATIN [Suspect]
     Active Substance: CISPLATIN
  4. PEMETREXED DISODIUM [Suspect]
     Active Substance: PEMETREXED DISODIUM
     Indication: Non-small cell lung cancer
     Dosage: THE PATIENT RECEIVED ONLY ONE DOSE OF STUDY THERAPY.
     Route: 065
     Dates: start: 20210330
  5. PEMETREXED DISODIUM [Suspect]
     Active Substance: PEMETREXED DISODIUM
  6. FOLIC ACID [Concomitant]
     Active Substance: FOLIC ACID
     Indication: Product used for unknown indication
     Dosage: DAILY; PER DAY
     Route: 048
     Dates: start: 20211120
  7. FOLIC ACID [Concomitant]
     Active Substance: FOLIC ACID
  8. METFORMIN HYDROCHLORIDE [Concomitant]
     Active Substance: METFORMIN HYDROCHLORIDE
     Indication: Product used for unknown indication
     Dosage: 500 MILLIGRAM, Q12H
     Route: 048
     Dates: start: 2015
  9. CYANOCOBALAMIN\PYRIDOXINE\THIAMINE [Concomitant]
     Active Substance: CYANOCOBALAMIN\PYRIDOXINE\THIAMINE
     Indication: Product used for unknown indication
     Dosage: 1 DOSAGE FORM= 1 UNIT NOS, PER MONTH, ONGOING
     Route: 030
     Dates: start: 20211120
  10. ISOPHANE INSULIN [Concomitant]
     Active Substance: INSULIN NOS
     Indication: Product used for unknown indication
     Dosage: 1 DOSAGE FORM = 30 UNIT NOS, QD, ONGING
     Route: 058
     Dates: start: 2021
  11. ISOPHANE INSULIN [Concomitant]
     Active Substance: INSULIN NOS
     Dosage: 1 DOSAGE FORM = 20 UNIT NOS, QD
     Route: 058
     Dates: start: 2021
  12. METOCLOPRAMIDE [Concomitant]
     Active Substance: METOCLOPRAMIDE
     Indication: Product used for unknown indication
     Dosage: 20 MILLIGRAM, Q8H
     Route: 048
     Dates: start: 20211208, end: 20211215
  13. ASTRAZENECA COVID-19 VACCINE [Concomitant]
     Active Substance: AZD-1222
     Indication: Product used for unknown indication
     Dosage: FIRST DOSE
     Route: 065
     Dates: start: 20210423
  14. ASTRAZENECA COVID-19 VACCINE [Concomitant]
     Active Substance: AZD-1222
     Dosage: SECOND DOSE
     Route: 065
     Dates: start: 20210630
  15. ONDANSETRON [Concomitant]
     Active Substance: ONDANSETRON
     Indication: Product used for unknown indication
     Route: 048
     Dates: start: 20211227, end: 20211229
  16. APREPITANT [Concomitant]
     Active Substance: APREPITANT
     Indication: Product used for unknown indication
     Dosage: ONCE
     Route: 048
     Dates: start: 20211226, end: 20211226
  17. APREPITANT [Concomitant]
     Active Substance: APREPITANT
     Route: 048
     Dates: start: 20211227, end: 20211228
  18. TRAMADOL [Concomitant]
     Active Substance: TRAMADOL
     Indication: Product used for unknown indication
     Dosage: ONGOING
     Route: 048
     Dates: start: 2021
  19. TRAMADOL [Concomitant]
     Active Substance: TRAMADOL
     Route: 042
     Dates: start: 20211222, end: 20211224

REACTIONS (2)
  - Pulmonary embolism [Recovered/Resolved]
  - Ischaemic stroke [Recovered/Resolved]

NARRATIVE: CASE EVENT DATE: 20211222
